FAERS Safety Report 20161540 (Version 2)
Quarter: 2021Q4

REPORT INFORMATION
  Report Type: Report from Study
  Country: DE (occurrence: DE)
  Receive Date: 20211208
  Receipt Date: 20211214
  Transmission Date: 20220303
  Serious: Yes (Other)
  Sender: FDA-Public Use
  Company Number: DE-PFM-2021-11966

PATIENT
  Sex: Male

DRUGS (2)
  1. BRAFTOVI [Suspect]
     Active Substance: ENCORAFENIB
     Indication: Neoplasm
     Dosage: 4 PILLS DAILY AS OPPOSED TO 6
     Route: 048
     Dates: start: 202103
  2. MEKTOVI [Suspect]
     Active Substance: BINIMETINIB
     Indication: Neoplasm
     Dosage: UNK
     Route: 048
     Dates: start: 202103

REACTIONS (3)
  - Neuropathy peripheral [Unknown]
  - Ejection fraction decreased [Unknown]
  - Abdominal pain [Unknown]
